FAERS Safety Report 21408111 (Version 1)
Quarter: 2022Q4

REPORT INFORMATION
  Report Type: Spontaneous
  Country: US (occurrence: US)
  Receive Date: 20221004
  Receipt Date: 20221004
  Transmission Date: 20230113
  Serious: Yes (Hospitalization, Disabling, Other)
  Sender: FDA-Public Use
  Company Number: US-ORGANON-1203USA03351

PATIENT
  Sex: Female
  Weight: 76.19 kg

DRUGS (8)
  1. FOSAMAX [Suspect]
     Active Substance: ALENDRONATE SODIUM
     Indication: Bone density decreased
     Dosage: 70 MG, UNK
     Route: 048
     Dates: start: 200303, end: 201103
  2. FOSAMAX [Suspect]
     Active Substance: ALENDRONATE SODIUM
     Indication: Osteopenia
  3. FOSAMAX [Suspect]
     Active Substance: ALENDRONATE SODIUM
     Indication: Bone density decreased
     Dosage: 70 MG, UNK
     Route: 048
  4. FOSAMAX [Suspect]
     Active Substance: ALENDRONATE SODIUM
     Indication: Osteopenia
  5. FOSAMAX PLUS D [Suspect]
     Active Substance: ALENDRONATE SODIUM\CHOLECALCIFEROL
     Dosage: 70 MG, UNK
     Route: 048
  6. PROTONIX [Concomitant]
     Active Substance: PANTOPRAZOLE SODIUM
     Indication: Gastrooesophageal reflux disease
     Dosage: UNK
     Dates: start: 2002
  7. NEXIUM [Concomitant]
     Active Substance: ESOMEPRAZOLE MAGNESIUM
     Indication: Gastrooesophageal reflux disease
     Dosage: UNK
  8. PREMARIN [Concomitant]
     Active Substance: ESTROGENS, CONJUGATED
     Indication: Postmenopause
     Dosage: UNK
     Dates: start: 1974, end: 200305

REACTIONS (16)
  - Femur fracture [Recovering/Resolving]
  - Osteoporosis [Not Recovered/Not Resolved]
  - Stress fracture [Not Recovered/Not Resolved]
  - Femur fracture [Not Recovered/Not Resolved]
  - Low turnover osteopathy [Not Recovered/Not Resolved]
  - Arthritis [Not Recovered/Not Resolved]
  - Atypical femur fracture [Unknown]
  - Atypical femur fracture [Recovering/Resolving]
  - Barrett^s oesophagus [Unknown]
  - Glaucoma [Unknown]
  - Conjunctival haemorrhage [Unknown]
  - Inner ear disorder [Unknown]
  - Peripheral vascular disorder [Unknown]
  - Gait spastic [Unknown]
  - Extraskeletal ossification [Unknown]
  - Back pain [Recovering/Resolving]

NARRATIVE: CASE EVENT DATE: 20080101
